FAERS Safety Report 9628666 (Version 4)
Quarter: 2015Q3

REPORT INFORMATION
  Report Type: Spontaneous
  Country: US (occurrence: US)
  Receive Date: 20131017
  Receipt Date: 20150716
  Transmission Date: 20151125
  Serious: Yes (Hospitalization, Disabling, Other)
  Sender: FDA-Public Use
  Company Number: US-BAYER-2013-123008

PATIENT
  Age: 30 Year
  Sex: Female
  Weight: 48.98 kg

DRUGS (7)
  1. CALCIUM [Concomitant]
     Active Substance: CALCIUM
  2. DOXYCYCLINE. [Concomitant]
     Active Substance: DOXYCYCLINE
     Dosage: 100 MG, BID
     Dates: start: 20110621
  3. TRAMADOL. [Concomitant]
     Active Substance: TRAMADOL
     Dosage: UNK
     Dates: start: 20110621
  4. MIRENA [Suspect]
     Active Substance: LEVONORGESTREL
     Indication: CONTRACEPTION
     Dosage: 20 MCG/24HR, CONT
     Route: 015
     Dates: start: 20110914, end: 20110927
  5. ALLEGRA [Concomitant]
     Active Substance: FEXOFENADINE HYDROCHLORIDE
  6. SINGULAIR [Concomitant]
     Active Substance: MONTELUKAST SODIUM
  7. MOBIC [Concomitant]
     Active Substance: MELOXICAM
     Dosage: 15 MG DAILY
     Dates: start: 20110621

REACTIONS (14)
  - Uterine perforation [None]
  - Injury [None]
  - Infertility [None]
  - Device dislocation [None]
  - Depression [None]
  - Emotional distress [None]
  - Endometriosis [None]
  - Fear [None]
  - Genital haemorrhage [None]
  - Ovarian cyst [None]
  - Internal injury [None]
  - Medical device discomfort [None]
  - Anxiety [None]
  - Pain [None]

NARRATIVE: CASE EVENT DATE: 201109
